FAERS Safety Report 5025722-3 (Version None)
Quarter: 2006Q2

REPORT INFORMATION
  Report Type: 
  Country: None (occurrence: None)
  Receive Date: 20060427
  Receipt Date: 20050818
  Transmission Date: 20061013
  Serious: Yes (Other)
  Sender: FDA-Public Use
  Company Number: 2005117658

PATIENT
  Sex: Female

DRUGS (1)
  1. ZITHROMAX [Suspect]
     Indication: SINUSITIS
     Dosage: ORAL
     Route: 048
     Dates: start: 20050815

REACTIONS (4)
  - DRUG INEFFECTIVE [None]
  - EAR DISORDER [None]
  - HYPOACUSIS [None]
  - PHARYNGOLARYNGEAL PAIN [None]
